FAERS Safety Report 7305211-3 (Version None)
Quarter: 2011Q1

REPORT INFORMATION
  Report Type: 
  Country: None (occurrence: None)
  Receive Date: 20110222
  Receipt Date: 20110215
  Transmission Date: 20110831
  Serious: Yes (Hospitalization, Disabling, Other)
  Sender: FDA-Public Use
  Company Number: US-PFIZER INC-2010126446

PATIENT
  Sex: Female
  Weight: 48.98 kg

DRUGS (7)
  1. XANAX [Suspect]
     Indication: SLEEP DISORDER
     Dosage: 0.5 MG, 3X/DAY
     Route: 048
     Dates: start: 19850101
  2. CO-DIOVAN [Concomitant]
     Dosage: 160/12.5 DAILY
  3. XANAX [Suspect]
     Indication: GENERALISED ANXIETY DISORDER
     Dosage: 1 MG TABLETS 1/2 THREE TIMES DAILY
     Route: 048
     Dates: start: 20101110
  4. DIOVAN [Concomitant]
     Indication: HYPERTENSION
     Dosage: 15 MG, 1X/DAY
     Route: 048
  5. XANAX [Suspect]
     Dosage: 0.5 MG, 3X/DAY
     Route: 048
     Dates: start: 20101119
  6. VITAMIN B-12 [Concomitant]
     Dosage: 500 UG, 3X/DAY
  7. VITAMIN B-12 [Concomitant]
     Dosage: 500 MG, UNK

REACTIONS (8)
  - GALLBLADDER OPERATION [None]
  - DRUG INEFFECTIVE [None]
  - MIDDLE INSOMNIA [None]
  - RESTLESSNESS [None]
  - DRUG DEPENDENCE [None]
  - INITIAL INSOMNIA [None]
  - ANXIETY [None]
  - FOOT FRACTURE [None]
